FAERS Safety Report 17292356 (Version 1)
Quarter: 2020Q1

REPORT INFORMATION
  Report Type: Spontaneous
  Country: RU (occurrence: RU)
  Receive Date: 20200121
  Receipt Date: 20200121
  Transmission Date: 20200409
  Serious: Yes (Hospitalization, Other)
  Sender: FDA-Public Use
  Company Number: RU-BAYER-2019-234539

PATIENT
  Age: 8 Year
  Sex: Female

DRUGS (9)
  1. LINEZOLID. [Concomitant]
     Active Substance: LINEZOLID
     Dosage: 180 MG
     Dates: start: 20180416
  2. AMOXICILLIN AND CLAVULANATE POTASSIUM [Concomitant]
     Active Substance: AMOXICILLIN\CLAVULANATE POTASSIUM
     Dosage: 500 MG, BID
  3. ISONIAZID. [Concomitant]
     Active Substance: ISONIAZID
     Dosage: 4 G
     Route: 042
     Dates: start: 20180411, end: 20180419
  4. RIFAMPICIN [Concomitant]
     Active Substance: RIFAMPIN
     Dosage: 0.3 G
     Dates: start: 20180411, end: 20180419
  5. AMIKACIN. [Concomitant]
     Active Substance: AMIKACIN
     Dosage: UNK
     Dates: start: 20180411
  6. PYRAZINAMIDE. [Concomitant]
     Active Substance: PYRAZINAMIDE
     Dosage: 0.6 G
     Dates: start: 20180411
  7. VITAMIN 15 [Concomitant]
  8. AVELOX [Suspect]
     Active Substance: MOXIFLOXACIN HYDROCHLORIDE
     Dosage: 200 MG
     Route: 042
     Dates: start: 20180411
  9. CAPREOMYCIN [Concomitant]
     Active Substance: CAPREOMYCIN
     Dosage: 400 UNK
     Dates: end: 20190207

REACTIONS (1)
  - Eosinophilia [None]
